FAERS Safety Report 9594842 (Version 1)
Quarter: 2013Q4

REPORT INFORMATION
  Report Type: Spontaneous
  Country: US (occurrence: US)
  Receive Date: 20131004
  Receipt Date: 20131004
  Transmission Date: 20140711
  Serious: No
  Sender: FDA-Public Use
  Company Number: US-PURDUE-USA-2012-0091431

PATIENT
  Sex: Male

DRUGS (2)
  1. BUTRANS [Suspect]
     Indication: PAIN
     Dosage: UNK
     Route: 062
  2. SYMBICORT [Concomitant]
     Indication: ASTHMA
     Dosage: UNK

REACTIONS (6)
  - Chest discomfort [Unknown]
  - Dyspnoea [Unknown]
  - Erythema [Unknown]
  - Drug effect decreased [Unknown]
  - Somnolence [Unknown]
  - Hyperhidrosis [Unknown]
